FAERS Safety Report 10053499 (Version 2)
Quarter: 2014Q2

REPORT INFORMATION
  Report Type: Spontaneous
  Country: IL (occurrence: IL)
  Receive Date: 20140402
  Receipt Date: 20140508
  Transmission Date: 20141212
  Serious: Yes (Hospitalization)
  Sender: FDA-Public Use
  Company Number: IL-ABBVIE-14P-082-1216839-00

PATIENT
  Sex: Female
  Weight: 50.5 kg

DRUGS (3)
  1. HUMIRA [Suspect]
     Indication: CROHN^S DISEASE
     Route: 058
  2. HUMIRA [Suspect]
     Route: 058
  3. COUMADIN [Concomitant]
     Indication: PRODUCT USED FOR UNKNOWN INDICATION
     Dosage: THE DOSAGE DEPENS ON INR. IF IT^S NORMAL, 5MG PER DAY.

REACTIONS (7)
  - Eyelid ptosis [Not Recovered/Not Resolved]
  - Crohn^s disease [Recovering/Resolving]
  - Pyrexia [Recovered/Resolved]
  - Thrombosis [Unknown]
  - Stress [Unknown]
  - Drug dose omission [Unknown]
  - Gastrooesophageal reflux disease [Not Recovered/Not Resolved]
